FAERS Safety Report 19942194 (Version 1)
Quarter: 2021Q4

REPORT INFORMATION
  Report Type: Spontaneous
  Country: US (occurrence: US)
  Receive Date: 20211007
  Receipt Date: 20211007
  Transmission Date: 20220303
  Serious: Yes (Hospitalization)
  Sender: FDA-Public Use
  Company Number: None

PATIENT
  Age: 42 Year
  Sex: Female

DRUGS (2)
  1. GAMUNEX-C [Suspect]
     Active Substance: HUMAN IMMUNOGLOBULIN G
     Indication: Immunodeficiency common variable
     Dosage: ?          OTHER DOSE:10 GM/100ML;
     Route: 058
     Dates: start: 20181116
  2. XOLAIR SOL [Concomitant]

REACTIONS (2)
  - Hallucination [None]
  - Hepato-lenticular degeneration [None]

NARRATIVE: CASE EVENT DATE: 20210801
